FAERS Safety Report 17035637 (Version 1)
Quarter: 2019Q4

REPORT INFORMATION
  Report Type: Spontaneous
  Country: GB (occurrence: GB)
  Receive Date: 20191114
  Receipt Date: 20191114
  Transmission Date: 20200122
  Serious: Yes (Disabling)
  Sender: FDA-Public Use
  Company Number: None

PATIENT
  Age: 41 Year
  Sex: Female
  Weight: 60.75 kg

DRUGS (2)
  1. EFFEXOR XR [Suspect]
     Active Substance: VENLAFAXINE HYDROCHLORIDE
     Indication: DEPRESSION
     Dosage: ?          QUANTITY:2 CAPSULE(S);?
     Route: 048
     Dates: start: 20010601, end: 20180907
  2. EFFEXOR XR (GENERIC) [Suspect]
     Active Substance: VENLAFAXINE HYDROCHLORIDE

REACTIONS (9)
  - Vomiting [None]
  - Disability [None]
  - Hypersomnia [None]
  - Depression [None]
  - Drug withdrawal syndrome [None]
  - Diarrhoea [None]
  - Panic attack [None]
  - Somnolence [None]
  - Suicidal ideation [None]

NARRATIVE: CASE EVENT DATE: 20181115
